FAERS Safety Report 4865126-7 (Version None)
Quarter: 2005Q4

REPORT INFORMATION
  Report Type: 
  Country: None (occurrence: None)
  Receive Date: 20051219
  Receipt Date: 20051202
  Transmission Date: 20060501
  Serious: Yes (Hospitalization, Disabling)
  Sender: FDA-Public Use
  Company Number: 220332

PATIENT
  Age: 60 Year
  Sex: Male
  Weight: 76 kg

DRUGS (4)
  1. AVASTIN [Suspect]
     Indication: COLORECTAL CANCER METASTATIC
     Dosage: 380 MG, Q2W, INTRAVENOUS
     Route: 042
     Dates: start: 20051024, end: 20051129
  2. IRINOTECAN HCL [Concomitant]
  3. FLUOROURACIL [Concomitant]
  4. LEUCOVORIN CALCIUM [Concomitant]

REACTIONS (2)
  - ILIAC ARTERY OCCLUSION [None]
  - PERIPHERAL ISCHAEMIA [None]
